FAERS Safety Report 4681944-2 (Version None)
Quarter: 2005Q2

REPORT INFORMATION
  Report Type: 
  Country: None (occurrence: None)
  Receive Date: 20050602
  Receipt Date: 20050520
  Transmission Date: 20051028
  Serious: Yes (Hospitalization, Other)
  Sender: FDA-Public Use
  Company Number: 2005077474

PATIENT
  Age: 64 Year
  Sex: Female

DRUGS (7)
  1. SULFASALAZINE [Suspect]
     Indication: RHEUMATOID ARTHRITIS
     Dosage: 2000 MG (500 MG, 4 IN 1 D) ORAL
     Route: 048
     Dates: start: 20041021, end: 20041122
  2. PANTOPRAZOLE SODIUM [Suspect]
     Indication: ILL-DEFINED DISORDER
     Dosage: UNK (40 MG, ONE TIME) ORAL
     Route: 048
     Dates: start: 20041021, end: 20041021
  3. KETOPROFEN [Suspect]
     Indication: RHEUMATOID ARTHRITIS
     Dosage: ORAL
     Route: 048
     Dates: start: 20041021, end: 20041122
  4. TRAMADOL HCL [Suspect]
     Indication: RHEUMATOID ARTHRITIS
     Dosage: ORAL
     Route: 048
     Dates: start: 20041021, end: 20041122
  5. ZINNAT (CEFUROXINE AXETIL) [Concomitant]
  6. SYMBICORT (BUDESONIDE, FORMOTEROL FUMARATE) [Concomitant]
  7. EXOMUC (ACETYLCYSTEINE) [Concomitant]

REACTIONS (10)
  - ANAEMIA [None]
  - FATIGUE [None]
  - HEPATITIS [None]
  - MYALGIA [None]
  - PLATELET COUNT DECREASED [None]
  - PROTHROMBIN TIME SHORTENED [None]
  - PYREXIA [None]
  - RASH ERYTHEMATOUS [None]
  - RHINORRHOEA [None]
  - SINUS HEADACHE [None]
